FAERS Safety Report 7999603-7 (Version None)
Quarter: 2011Q4

REPORT INFORMATION
  Report Type: 
  Country: None (occurrence: None)
  Receive Date: 20111221
  Receipt Date: 20111207
  Transmission Date: 20120403
  Serious: Yes (Hospitalization)
  Sender: FDA-Public Use
  Company Number: US-MERCK-1103USA03934

PATIENT
  Age: 76 Year
  Sex: Female

DRUGS (3)
  1. COZAAR [Suspect]
     Route: 048
  2. COZAAR [Suspect]
     Route: 048
  3. COZAAR [Suspect]
     Indication: HYPERTENSION
     Route: 048

REACTIONS (5)
  - SYNCOPE [None]
  - DIZZINESS [None]
  - HOSPITALISATION [None]
  - VISUAL IMPAIRMENT [None]
  - ADVERSE EVENT [None]
